FAERS Safety Report 13229285 (Version 4)
Quarter: 2023Q4

REPORT INFORMATION
  Report Type: Report from Study
  Country: US (occurrence: US)
  Receive Date: 20170214
  Receipt Date: 20231129
  Transmission Date: 20240110
  Serious: Yes (Hospitalization)
  Sender: FDA-Public Use
  Company Number: US-ACADIA PHARMACEUTICALS INC.-ACA-2017-002192

PATIENT
  Sex: Male
  Weight: 77 kg

DRUGS (11)
  1. NUPLAZID [Suspect]
     Active Substance: PIMAVANSERIN TARTRATE
     Indication: Dementia
     Dosage: 17 MG, QD
     Route: 048
     Dates: start: 201606
  2. NUPLAZID [Suspect]
     Active Substance: PIMAVANSERIN TARTRATE
     Indication: Parkinson^s disease
     Dosage: 34 MG QD
     Route: 048
     Dates: start: 20160713, end: 20170918
  3. NUPLAZID [Suspect]
     Active Substance: PIMAVANSERIN TARTRATE
     Dosage: 34 MG QD
     Route: 048
     Dates: start: 201711
  4. NUPLAZID [Suspect]
     Active Substance: PIMAVANSERIN TARTRATE
     Indication: Parkinson^s disease
     Dosage: 34 MILLIGRAM, QD
     Route: 048
  5. NUPLAZID [Suspect]
     Active Substance: PIMAVANSERIN TARTRATE
     Indication: Dementia
  6. CARBIDOPA\LEVODOPA [Concomitant]
     Active Substance: CARBIDOPA\LEVODOPA
     Dosage: 25/100
     Route: 065
  7. MIRAPEX [Concomitant]
     Active Substance: PRAMIPEXOLE DIHYDROCHLORIDE
     Dosage: UNK
     Route: 065
  8. TASMAR [Concomitant]
     Active Substance: TOLCAPONE
     Dosage: UNK
     Route: 065
  9. BACLOFEN [Concomitant]
     Active Substance: BACLOFEN
     Dosage: UNK
     Route: 065
  10. KLONOPIN [Concomitant]
     Active Substance: CLONAZEPAM
     Dosage: UNK
     Route: 065
  11. APOKYN [Concomitant]
     Active Substance: APOMORPHINE HYDROCHLORIDE
     Dosage: UNK
     Route: 065

REACTIONS (3)
  - Migraine [Not Recovered/Not Resolved]
  - Migraine [Unknown]
  - Underdose [Unknown]

NARRATIVE: CASE EVENT DATE: 20160101
